FAERS Safety Report 9123809 (Version 1)
Quarter: 2013Q1

REPORT INFORMATION
  Report Type: Spontaneous
  Country: US (occurrence: US)
  Receive Date: 20130227
  Receipt Date: 20130227
  Transmission Date: 20140127
  Serious: No
  Sender: FDA-Public Use
  Company Number: US-PFIZER INC-2013065691

PATIENT
  Age: 57 Year
  Sex: Male
  Weight: 94.33 kg

DRUGS (1)
  1. VANCOMYCIN HCL [Suspect]
     Dosage: UNK

REACTIONS (5)
  - Red man syndrome [Unknown]
  - Arthralgia [Unknown]
  - Hypoaesthesia [Unknown]
  - Anxiety [Unknown]
  - Rash [Unknown]
